FAERS Safety Report 10566793 (Version 2)
Quarter: 2014Q4

REPORT INFORMATION
  Report Type: Report from Study
  Country: TR (occurrence: TR)
  Receive Date: 20141105
  Receipt Date: 20141115
  Transmission Date: 20150529
  Serious: Yes (Hospitalization)
  Sender: FDA-Public Use
  Company Number: TR-ABBVIE-14K-161-1303351-00

PATIENT
  Age: 66 Year
  Sex: Female
  Weight: 51 kg

DRUGS (2)
  1. HUMIRA [Suspect]
     Active Substance: ADALIMUMAB
     Indication: CROHN^S DISEASE
     Route: 058
     Dates: start: 20140430, end: 20140901
  2. HUMIRA [Suspect]
     Active Substance: ADALIMUMAB
     Indication: INTESTINAL FISTULA

REACTIONS (3)
  - Diplopia [Not Recovered/Not Resolved]
  - Sinusitis fungal [Not Recovered/Not Resolved]
  - Headache [Recovered/Resolved]

NARRATIVE: CASE EVENT DATE: 20140901
